FAERS Safety Report 8072819-X (Version None)
Quarter: 2012Q1

REPORT INFORMATION
  Report Type: 
  Country: None (occurrence: None)
  Receive Date: 20120123
  Receipt Date: 20120123
  Transmission Date: 20120608
  Serious: Yes (Hospitalization)
  Sender: FDA-Public Use
  Company Number: None

PATIENT
  Age: 52 Year
  Sex: Female
  Weight: 49.9 kg

DRUGS (13)
  1. SORAFENIB [Suspect]
     Indication: LUNG NEOPLASM MALIGNANT
     Dosage: 200MG TWICE DAILY- ORAL
     Route: 048
     Dates: start: 20120111, end: 20120118
  2. MAGONATE [Concomitant]
  3. MORPHINE SULFATE [Concomitant]
  4. PEPCID [Concomitant]
  5. METFORMIN HCL [Concomitant]
  6. CHANTIX [Concomitant]
  7. ALBUTEROL [Concomitant]
  8. AGGRENOX [Concomitant]
  9. POTASSIUM CHLORIDE [Concomitant]
  10. NEURONTIN [Concomitant]
  11. LBH589 [Suspect]
     Indication: LUNG NEOPLASM MALIGNANT
     Dosage: 20MG ONCE DAILY MWF-ORAL
     Route: 048
     Dates: start: 20120111, end: 20120118
  12. ALBUTEROL [Concomitant]
  13. NITROGLYCERIN [Concomitant]

REACTIONS (9)
  - VOMITING [None]
  - SHOCK [None]
  - PERIPHERAL COLDNESS [None]
  - NAUSEA [None]
  - ATRIAL FLUTTER [None]
  - DIARRHOEA [None]
  - RETCHING [None]
  - HYPONATRAEMIA [None]
  - SUPRAVENTRICULAR TACHYCARDIA [None]
